FAERS Safety Report 4309801-1 (Version None)
Quarter: 2004Q1

REPORT INFORMATION
  Report Type: 
  Country: None (occurrence: None)
  Receive Date: 20040301
  Receipt Date: 20040219
  Transmission Date: 20041129
  Serious: Yes (Death, Other)
  Sender: FDA-Public Use
  Company Number: USA-2003-0011204

PATIENT
  Age: 22 Year
  Sex: Male
  Weight: 85.7 kg

DRUGS (2)
  1. MS CONTIN [Suspect]
     Dosage: NASAL
     Route: 045
  2. ETHANOL(ETHANOL) [Suspect]

REACTIONS (12)
  - ACCIDENTAL OVERDOSE [None]
  - ALCOHOL USE [None]
  - CONGENITAL CARDIAC SEPTAL DEFECT [None]
  - DRUG TOXICITY [None]
  - GASTRIC DISORDER [None]
  - GASTROINTESTINAL MUCOSAL DISORDER [None]
  - HAEMANGIOMA OF LIVER [None]
  - INTENTIONAL MISUSE [None]
  - MULTIPLE DRUG OVERDOSE [None]
  - OESOPHAGEAL DISORDER [None]
  - PULMONARY CONGESTION [None]
  - PULMONARY OEDEMA [None]
